FAERS Safety Report 7417122-3 (Version None)
Quarter: 2011Q2

REPORT INFORMATION
  Report Type: 
  Country: None (occurrence: None)
  Receive Date: 20110412
  Receipt Date: 20110412
  Transmission Date: 20111010
  Serious: Yes (Other)
  Sender: FDA-Public Use
  Company Number: None

PATIENT
  Age: 61 Year
  Sex: Female
  Weight: 83.4619 kg

DRUGS (1)
  1. LISINOPRIL [Suspect]
     Indication: BLOOD PRESSURE INCREASED
     Dosage: ONE  ONE ORAL
     Route: 048
     Dates: start: 20110323, end: 20110324

REACTIONS (3)
  - EYE SWELLING [None]
  - JOINT SWELLING [None]
  - ARTHRALGIA [None]
